FAERS Safety Report 10986996 (Version 1)
Quarter: 2015Q1

REPORT INFORMATION
  Report Type: Spontaneous
  Country: US (occurrence: None)
  Receive Date: 20150304
  Receipt Date: 20150304
  Transmission Date: 20150721
  Serious: Yes (Hospitalization)
  Sender: FDA-Public Use
  Company Number: 2014TUS002586

PATIENT
  Age: 45 Year
  Sex: Female

DRUGS (12)
  1. NORCO (VICODIN) [Concomitant]
  2. HP PAC (AMOXICILLIN CLARITHROMYCIN ANSOPRAZOLE) CAPSULE [Suspect]
     Active Substance: AMOXICILLIN\CLARITHROMYCIN\LANSOPRAZOLE
     Dates: start: 201402, end: 201402
  3. PROZAC [Concomitant]
     Active Substance: FLUOXETINE HYDROCHLORIDE
  4. ZOFRAN (ONDANSETRON) [Concomitant]
  5. HP PAC (AMOXICILLIN CLARITHROMYCIN ANSOPRAZOLE) CAPSULE [Suspect]
     Active Substance: AMOXICILLIN\CLARITHROMYCIN\LANSOPRAZOLE
     Indication: IMMUNOGLOBULINS DECREASED
     Dates: start: 201402, end: 201402
  6. PREVPAC [Suspect]
     Active Substance: AMOXICILLIN\CLARITHROMYCIN\LANSOPRAZOLE
  7. ATIVAN [Concomitant]
     Active Substance: LORAZEPAM
  8. LEVSIN (HYOSCYAMINE SULFATE) [Concomitant]
  9. KALBITOR [Concomitant]
     Active Substance: ECALLANTIDE
  10. PROTONIX  (PANTOPRAZOLE SODIUM) [Concomitant]
  11. CINRYZE [Suspect]
     Active Substance: HUMAN C1-ESTERASE INHIBITOR
     Indication: HEREDITARY ANGIOEDEMA
     Dosage: 1000 UNITS, 1 IN 48 HR
     Route: 042
     Dates: start: 200906, end: 201402
  12. CINRYZE [Suspect]
     Active Substance: HUMAN C1-ESTERASE INHIBITOR
     Indication: PROPHYLAXIS
     Dosage: 1000 UNITS, 1 IN 48 HR
     Route: 042
     Dates: start: 200906, end: 201402

REACTIONS (5)
  - Helicobacter test positive [None]
  - Angioedema [None]
  - Therapy change [None]
  - Inappropriate schedule of drug administration [None]
  - Hereditary angioedema [None]

NARRATIVE: CASE EVENT DATE: 200902
